FAERS Safety Report 8103097-0 (Version None)
Quarter: 2012Q1

REPORT INFORMATION
  Report Type: 
  Country: None (occurrence: None)
  Receive Date: 20120201
  Receipt Date: 20120125
  Transmission Date: 20120608
  Serious: Yes (Other)
  Sender: FDA-Public Use
  Company Number: AU-JNJFOC-20120100983

PATIENT
  Sex: Male

DRUGS (1)
  1. INVEGA SUSTENNA [Suspect]
     Indication: ACCIDENTAL EXPOSURE
     Route: 065

REACTIONS (3)
  - PRODUCT QUALITY ISSUE [None]
  - INJURY ASSOCIATED WITH DEVICE [None]
  - EXPOSURE TO CONTAMINATED DEVICE [None]
